FAERS Safety Report 20235621 (Version 2)
Quarter: 2025Q4

REPORT INFORMATION
  Report Type: Spontaneous
  Country: CA (occurrence: CA)
  Receive Date: 20211228
  Receipt Date: 20251221
  Transmission Date: 20260118
  Serious: Yes (Hospitalization, Other)
  Sender: AUROBINDO
  Company Number: CA-AUROBINDO-AUR-APL-2021-052710

PATIENT
  Age: 62 Year
  Sex: Female

DRUGS (2)
  1. MOXIFLOXACIN [Suspect]
     Active Substance: MOXIFLOXACIN
     Indication: Postoperative wound infection
     Dosage: UNK
     Route: 065
  2. MEPOLIZUMAB [Suspect]
     Active Substance: MEPOLIZUMAB
     Indication: Asthma
     Dosage: 100 MILLIGRAM (1 EVERY 4 WEEKS)

REACTIONS (6)
  - Cough [Unknown]
  - Drug hypersensitivity [Unknown]
  - Hip surgery [Unknown]
  - Infection [Unknown]
  - Postoperative wound infection [Unknown]
  - Product dose omission issue [Unknown]
